FAERS Safety Report 7815596-7 (Version None)
Quarter: 2011Q4

REPORT INFORMATION
  Report Type: 
  Country: None (occurrence: None)
  Receive Date: 20111012
  Receipt Date: 20110927
  Transmission Date: 20120403
  Serious: Yes (Hospitalization)
  Sender: FDA-Public Use
  Company Number: 2011PV000055

PATIENT
  Age: 48 Year
  Sex: Female

DRUGS (2)
  1. DEPOCYT [Suspect]
     Dosage: 50 MG;INTH
     Dates: start: 20110713, end: 20110721
  2. METHOTREXATE [Suspect]
     Dosage: IV
     Route: 042
     Dates: start: 20110713, end: 20110721

REACTIONS (7)
  - HAEMORRHAGIC STROKE [None]
  - COMA [None]
  - THROMBOCYTOPENIA [None]
  - DYSARTHRIA [None]
  - HISTIOCYTOSIS HAEMATOPHAGIC [None]
  - MOTOR DYSFUNCTION [None]
  - ENCEPHALOPATHY [None]
